FAERS Safety Report 5052697-3 (Version None)
Quarter: 2006Q3

REPORT INFORMATION
  Report Type: 
  Country: None (occurrence: None)
  Receive Date: 20060712
  Receipt Date: 20060712
  Transmission Date: 20061208
  Serious: Yes (Life-Threatening)
  Sender: FDA-Public Use
  Company Number: None

PATIENT
  Age: 7 Year
  Sex: Female

DRUGS (1)
  1. RITALIN [Suspect]

REACTIONS (5)
  - APLASTIC ANAEMIA [None]
  - GENE MUTATION [None]
  - IDIOPATHIC THROMBOCYTOPENIC PURPURA [None]
  - RED BLOOD CELL ABNORMALITY [None]
  - WHITE BLOOD CELL DISORDER [None]
